FAERS Safety Report 7428033-1 (Version None)
Quarter: 2011Q2

REPORT INFORMATION
  Report Type: 
  Country: None (occurrence: None)
  Receive Date: 20110421
  Receipt Date: 20110415
  Transmission Date: 20111010
  Serious: Yes (Hospitalization)
  Sender: FDA-Public Use
  Company Number: ES-BIOGENIDEC-2011BI004215

PATIENT
  Age: 30 Year
  Sex: Female

DRUGS (2)
  1. TYSABRI [Suspect]
     Indication: MULTIPLE SCLEROSIS
     Route: 042
     Dates: start: 20080919
  2. AUGMENTIN [Concomitant]
     Dates: start: 20100501

REACTIONS (2)
  - PSEUDOMEMBRANOUS COLITIS [None]
  - LIMB INJURY [None]
